FAERS Safety Report 14519815 (Version 1)
Quarter: 2018Q1

REPORT INFORMATION
  Report Type: Spontaneous
  Country: FR (occurrence: FR)
  Receive Date: 20180212
  Receipt Date: 20180212
  Transmission Date: 20180509
  Serious: Yes (Death)
  Sender: FDA-Public Use
  Company Number: PHHY2017FR200487

PATIENT

DRUGS (1)
  1. METHOTREXATE. [Suspect]
     Active Substance: METHOTREXATE
     Indication: OSTEOSARCOMA
     Dosage: 12000 MG/M2, QD (IN 1L OF 5% DEXTROSE IN WATER WITH 1MEQ/KG OF SODIUM BICARBONATE ADMINISTERED AS 4H
     Route: 041

REACTIONS (1)
  - Toxicity to various agents [Fatal]
